FAERS Safety Report 8863049 (Version 4)
Quarter: 2013Q2

REPORT INFORMATION
  Report Type: Spontaneous
  Country: US (occurrence: US)
  Receive Date: 20121026
  Receipt Date: 20130607
  Transmission Date: 20140414
  Serious: Yes (Hospitalization, Other)
  Sender: FDA-Public Use
  Company Number: US-ALEXION-A201202015

PATIENT
  Age: 48 Year
  Sex: Female
  Weight: 84.2 kg

DRUGS (23)
  1. SOLIRIS 300MG [Suspect]
     Indication: PAROXYSMAL NOCTURNAL HAEMOGLOBINURIA
     Dosage: 600 MG, QW
     Route: 042
     Dates: start: 20100330, end: 201008
  2. SOLIRIS 300MG [Suspect]
     Dosage: 900 MG, Q2W
     Route: 042
     Dates: start: 20100803
  3. COUMADIN [Concomitant]
     Indication: PROPHYLAXIS
     Dosage: ALTERNATE 6 MG OR 7 MG
     Route: 048
     Dates: start: 2005, end: 201210
  4. CALCIUM + VITAMIN D [Concomitant]
     Indication: SUPPLEMENTATION THERAPY
     Dosage: UNK QD
     Route: 048
  5. CYMBALTA [Concomitant]
     Indication: DEPRESSION
     Dosage: 60 MG, QD
     Route: 048
  6. FOLBIC [Concomitant]
     Indication: VITAMIN SUPPLEMENTATION
     Dosage: 400 ?G, QD
     Route: 048
  7. GLUCOSAMINE [Concomitant]
     Indication: SUPPLEMENTATION THERAPY
     Dosage: 1000 MG, QD
     Route: 048
  8. HYDROCHLOROTHIAZIDE [Concomitant]
     Indication: FLUID RETENTION
     Dosage: 25 MG, QD
     Route: 048
  9. IRON [Concomitant]
     Indication: MINERAL SUPPLEMENTATION
     Dosage: 60 MG, QD
     Route: 048
  10. IRON [Concomitant]
     Dosage: 325 MG, QD
     Route: 048
  11. IRON [Concomitant]
     Dosage: 45 MG, QD
  12. L-LYSINE [Concomitant]
     Indication: SUPPLEMENTATION THERAPY
     Dosage: 500 MG, QOD
     Route: 048
  13. DOXYCYCLINE [Concomitant]
     Indication: ACNE
     Dosage: 100 MG, BID
     Route: 048
  14. TYLENOL W/CODEINE NO. 3 [Concomitant]
     Indication: PAIN
     Dosage: 1 DF, QID PRN
     Route: 048
  15. TYLENOL W/CODEINE NO. 3 [Concomitant]
     Dosage: 1 - 2 Q 6 HOURS PRN
  16. VALTREX [Concomitant]
     Indication: ORAL HERPES
     Dosage: 1000 MG, PRN
     Route: 048
  17. VALTREX [Concomitant]
     Dosage: 2 G, PRN DAILY
     Route: 048
  18. VITAMIN D [Concomitant]
     Indication: SUPPLEMENTATION THERAPY
     Dosage: 1000 UT, QD
     Route: 048
  19. WELLBUTRIN [Concomitant]
     Indication: DEPRESSION
     Dosage: 150 MG, BID
     Route: 048
  20. XANAX [Concomitant]
     Indication: ANXIETY
     Dosage: 0.5 MG, QD PM
     Route: 048
  21. CLINDAMYCIN [Concomitant]
     Indication: ACNE
     Dosage: UNK
     Route: 061
  22. NADOLOL [Concomitant]
     Dosage: 40 MG, QD
     Route: 048
  23. EMLA [Concomitant]
     Dosage: PRN FOR PORT
     Route: 061

REACTIONS (3)
  - Oesophageal varices haemorrhage [Recovering/Resolving]
  - Pulmonary hypertension [Not Recovered/Not Resolved]
  - Diastolic dysfunction [Not Recovered/Not Resolved]
